FAERS Safety Report 24653011 (Version 1)
Quarter: 2024Q4

REPORT INFORMATION
  Report Type: Spontaneous
  Country: US (occurrence: None)
  Receive Date: 20241122
  Receipt Date: 20241122
  Transmission Date: 20250114
  Serious: Yes (Hospitalization)
  Sender: Public
  Company Number: None

PATIENT
  Age: 65 Year
  Sex: Male

DRUGS (1)
  1. EMPAGLIFLOZIN [Suspect]
     Active Substance: EMPAGLIFLOZIN
     Indication: Diabetes mellitus
     Dosage: FREQUENCY : DAILY;?
     Route: 048
     Dates: start: 20220921, end: 20231107

REACTIONS (9)
  - Dizziness [None]
  - Vomiting [None]
  - Fall [None]
  - Orthostatic hypotension [None]
  - Hypovolaemia [None]
  - Presyncope [None]
  - Hyponatraemia [None]
  - Lactic acidosis [None]
  - Seizure [None]

NARRATIVE: CASE EVENT DATE: 20231107
